FAERS Safety Report 13315377 (Version 1)
Quarter: 2017Q1

REPORT INFORMATION
  Report Type: Spontaneous
  Country: US (occurrence: US)
  Receive Date: 20170309
  Receipt Date: 20170309
  Transmission Date: 20170428
  Serious: No
  Sender: FDA-Public Use
  Company Number: US-BAUSCH-BL-2016-012690

PATIENT
  Age: 73 Year
  Sex: Female
  Weight: 78.09 kg

DRUGS (10)
  1. METOPROLOL. [Concomitant]
     Active Substance: METOPROLOL
     Indication: HYPERTENSION
  2. LOSARTAN. [Concomitant]
     Active Substance: LOSARTAN
     Indication: CARDIAC MURMUR
  3. LOSARTAN. [Concomitant]
     Active Substance: LOSARTAN
     Indication: HYPERTENSION
  4. EDECRIN [Suspect]
     Active Substance: ETHACRYNIC ACID
     Indication: HYPERTENSION
  5. EDECRIN [Suspect]
     Active Substance: ETHACRYNIC ACID
     Indication: FLUID RETENTION
     Dosage: AS NEEDED
     Route: 048
     Dates: start: 2016
  6. METOPROLOL. [Concomitant]
     Active Substance: METOPROLOL
     Indication: CARDIAC MURMUR
  7. PRAVASTATIN. [Concomitant]
     Active Substance: PRAVASTATIN
     Indication: HYPERLIPIDAEMIA
  8. COENZYME Q10 [Concomitant]
     Active Substance: UBIDECARENONE
     Indication: SUPPLEMENTATION THERAPY
  9. GLUCOSAMINE AND CHONDROITIN WITH MSM [Concomitant]
     Indication: ARTHRITIS
  10. GLUCOSAMINE AND CHONDROITIN WITH MSM [Concomitant]
     Indication: FIBROMYALGIA

REACTIONS (4)
  - Dehydration [Recovered/Resolved]
  - Vomiting [Recovered/Resolved]
  - Abdominal pain upper [Recovered/Resolved]
  - Nausea [Recovered/Resolved]

NARRATIVE: CASE EVENT DATE: 2016
